FAERS Safety Report 8138782-8 (Version None)
Quarter: 2012Q1

REPORT INFORMATION
  Report Type: 
  Country: None (occurrence: None)
  Receive Date: 20120215
  Receipt Date: 20120215
  Transmission Date: 20120608
  Serious: Yes (Other)
  Sender: FDA-Public Use
  Company Number: DE-GLAXOSMITHKLINE-D0072667A

PATIENT
  Sex: Female

DRUGS (3)
  1. LEVETIRACETAM [Concomitant]
     Dosage: 500MG PER DAY
     Route: 065
  2. TROBALT [Suspect]
     Dosage: 200MG THREE TIMES PER DAY
     Route: 065
  3. LAMOTRIGINE [Concomitant]
     Dosage: 400MG PER DAY
     Route: 065

REACTIONS (3)
  - HEPATIC ENZYME INCREASED [None]
  - FATIGUE [None]
  - DEPRESSION [None]
